FAERS Safety Report 10904527 (Version 1)
Quarter: 2015Q1

REPORT INFORMATION
  Report Type: Spontaneous
  Country: US (occurrence: None)
  Receive Date: 20150304
  Receipt Date: 20150304
  Transmission Date: 20150721
  Serious: Yes (Other)
  Sender: FDA-Public Use
  Company Number: None

PATIENT
  Age: 47 Year
  Sex: Female
  Weight: 77 kg

DRUGS (2)
  1. NEUTROGENA OIL-FREE MOISTURE SPF 35 [Suspect]
     Active Substance: AVOBENZONE\HOMOSALATE\OCTISALATE\OCTOCRYLENE\OXYBENZONE
     Indication: THERAPEUTIC SKIN CARE TOPICAL
     Route: 061
  2. NTG AGE INTEN DEEP WRINKLE MOIST NGHT [Suspect]
     Active Substance: COSMETICS
     Indication: SKIN WRINKLING
     Dosage: PEARL SIZE
     Route: 061
     Dates: start: 20150201

REACTIONS (6)
  - Application site discolouration [None]
  - Application site pruritus [None]
  - Hypersensitivity [None]
  - Application site reaction [None]
  - Application site vesicles [None]
  - Application site erythema [None]

NARRATIVE: CASE EVENT DATE: 20150201
